FAERS Safety Report 7523378-9 (Version None)
Quarter: 2011Q2

REPORT INFORMATION
  Report Type: 
  Country: None (occurrence: None)
  Receive Date: 20110603
  Receipt Date: 20110601
  Transmission Date: 20111010
  Serious: Yes (Hospitalization)
  Sender: FDA-Public Use
  Company Number: B0718259A

PATIENT
  Sex: Female
  Weight: 72 kg

DRUGS (4)
  1. POTASSIUM CHLORIDE [Concomitant]
     Dosage: 1UNIT SIX TIMES PER DAY
     Route: 048
     Dates: start: 20100306, end: 20100310
  2. LASIX [Suspect]
     Dosage: 500MG PER DAY
     Route: 048
     Dates: start: 20110307, end: 20110313
  3. ARIXTRA [Suspect]
     Indication: DEEP VEIN THROMBOSIS
     Dosage: 7.5MG PER DAY
     Route: 058
     Dates: start: 20110304, end: 20110309
  4. CANDESARTAN CILEXETIL [Concomitant]
     Dosage: 16MG PER DAY
     Route: 048

REACTIONS (2)
  - HAEMATOMA [None]
  - RED BLOOD CELL COUNT DECREASED [None]
